FAERS Safety Report 9994542 (Version 2)
Quarter: 2014Q2

REPORT INFORMATION
  Report Type: Report from Study
  Country: PE (occurrence: PE)
  Receive Date: 20140311
  Receipt Date: 20140423
  Transmission Date: 20141212
  Serious: Yes (Hospitalization)
  Sender: FDA-Public Use
  Company Number: PE-ROCHE-1362101

PATIENT
  Age: 13 Year
  Sex: Male

DRUGS (1)
  1. PULMOZYME [Suspect]
     Indication: CYSTIC FIBROSIS
     Route: 048
     Dates: start: 20130624

REACTIONS (4)
  - Pyrexia [Recovered/Resolved]
  - Staphylococcal infection [Not Recovered/Not Resolved]
  - Cough [Recovering/Resolving]
  - Agitation [Recovering/Resolving]
